FAERS Safety Report 7380911-8 (Version None)
Quarter: 2011Q1

REPORT INFORMATION
  Report Type: 
  Country: None (occurrence: None)
  Receive Date: 20110329
  Receipt Date: 20110322
  Transmission Date: 20110831
  Serious: Yes (Hospitalization)
  Sender: FDA-Public Use
  Company Number: PHHY2011FR24486

PATIENT
  Sex: Male

DRUGS (2)
  1. SIFROL [Suspect]
     Dosage: UNK
     Dates: end: 20110118
  2. STALEVO 100 [Suspect]
     Dosage: UNK
     Dates: end: 20110304

REACTIONS (3)
  - ABNORMAL BEHAVIOUR [None]
  - AGGRESSION [None]
  - AGITATION [None]
